FAERS Safety Report 6751420-1 (Version None)
Quarter: 2010Q2

REPORT INFORMATION
  Report Type: 
  Country: None (occurrence: None)
  Receive Date: 20100602
  Receipt Date: 20030813
  Transmission Date: 20101027
  Serious: Yes (Hospitalization)
  Sender: FDA-Public Use
  Company Number: BR-ROCHE-344603

PATIENT
  Sex: Male
  Weight: 66 kg

DRUGS (34)
  1. ZENAPAX [Suspect]
     Route: 042
     Dates: start: 20030610, end: 20030610
  2. ZENAPAX [Suspect]
     Route: 042
     Dates: start: 20030625, end: 20030806
  3. MYCOPHENOLATE MOFETIL [Suspect]
     Route: 048
     Dates: start: 20030610, end: 20030612
  4. MYCOPHENOLATE MOFETIL [Suspect]
     Route: 048
     Dates: start: 20030613, end: 20030701
  5. MYCOPHENOLATE MOFETIL [Suspect]
     Route: 048
     Dates: start: 20030702, end: 20030731
  6. MYCOPHENOLATE MOFETIL [Suspect]
     Route: 048
     Dates: start: 20030801, end: 20030806
  7. CYCLOSPORINE [Suspect]
     Route: 065
     Dates: start: 20030830
  8. CYCLOSPORINE [Suspect]
     Route: 065
     Dates: start: 20030925
  9. TACROLIMUS [Suspect]
     Route: 065
     Dates: start: 20030819, end: 20030830
  10. SIROLIMUS [Suspect]
     Route: 048
     Dates: start: 20030610, end: 20030612
  11. SIROLIMUS [Suspect]
     Route: 048
     Dates: start: 20030613
  12. SIROLIMUS [Suspect]
     Route: 048
     Dates: start: 20030729
  13. SIROLIMUS [Suspect]
     Route: 048
     Dates: start: 20030811, end: 20030814
  14. METHYLPREDNISOLONE [Suspect]
     Route: 042
     Dates: start: 20030610, end: 20030613
  15. METHYLPREDNISOLONE [Suspect]
     Route: 042
     Dates: start: 20030702, end: 20030708
  16. PREDNISONE TAB [Suspect]
     Dosage: FORM: DRAG
     Route: 048
     Dates: start: 20030613, end: 20030806
  17. PREDNISONE TAB [Suspect]
     Route: 048
     Dates: start: 20030807
  18. PREDNISONE TAB [Suspect]
     Route: 048
     Dates: start: 20030818
  19. PREDNISONE TAB [Suspect]
     Route: 048
     Dates: start: 20030905, end: 20030915
  20. PREDNISONE TAB [Suspect]
     Route: 048
     Dates: start: 20030916, end: 20030922
  21. PREDNISONE TAB [Suspect]
     Route: 048
     Dates: start: 20030923, end: 20031014
  22. PREDNISONE TAB [Suspect]
     Route: 048
     Dates: start: 20031015, end: 20031021
  23. PREDNISONE TAB [Suspect]
     Route: 048
     Dates: start: 20031022
  24. GANCICLOVIR SODIUM [Suspect]
     Indication: DRUG USE FOR UNKNOWN INDICATION
     Route: 042
     Dates: start: 20030723, end: 20030805
  25. FLUCONAZOLE [Concomitant]
     Route: 042
     Dates: start: 20030718, end: 20030807
  26. CLONIDINE [Concomitant]
     Dosage: FORM: DRAG
     Route: 048
     Dates: start: 20030619
  27. PROPRANOLOL [Concomitant]
     Dosage: FORM: DRAG
     Route: 048
     Dates: start: 20030613
  28. HYDRALAZINE HCL [Concomitant]
     Dosage: FORM: DRAG
     Route: 048
     Dates: start: 20030613
  29. HYDRALAZINE HCL [Concomitant]
     Route: 048
     Dates: start: 20041029
  30. COTRIM [Concomitant]
     Route: 048
     Dates: start: 20030614
  31. CEFEPIME [Concomitant]
     Route: 042
     Dates: start: 20030628, end: 20030714
  32. FUROSEMIDE [Concomitant]
     Dosage: FORM: DRAG
     Route: 048
     Dates: start: 20030613, end: 20030619
  33. RANITIDINE [Concomitant]
     Route: 042
     Dates: start: 20030610
  34. RANITIDINE [Concomitant]
     Dosage: FORM: DRAG
     Route: 048
     Dates: start: 20030614

REACTIONS (1)
  - BONE MARROW FAILURE [None]
